FAERS Safety Report 8580423-X (Version None)
Quarter: 2012Q3

REPORT INFORMATION
  Report Type: 
  Country: None (occurrence: None)
  Receive Date: 20120808
  Receipt Date: 20120802
  Transmission Date: 20120928
  Serious: Yes (Other)
  Sender: FDA-Public Use
  Company Number: US-ROXANE LABORATORIES, INC.-2012-RO-01634RO

PATIENT
  Age: 18 Year
  Sex: Male

DRUGS (2)
  1. MESALAMINE [Suspect]
     Indication: COLITIS ULCERATIVE
  2. MERCAPTOPURINE [Suspect]
     Indication: COLITIS ULCERATIVE

REACTIONS (1)
  - HODGKIN'S DISEASE STAGE IV [None]
